FAERS Safety Report 6259695-2 (Version None)
Quarter: 2009Q3

REPORT INFORMATION
  Report Type: 
  Country: None (occurrence: None)
  Receive Date: 20090701
  Receipt Date: 20090615
  Transmission Date: 20100115
  Serious: No
  Sender: FDA-Public Use
  Company Number: A03200902687

PATIENT
  Age: 81 Year
  Sex: Male

DRUGS (1)
  1. OFORTA -   (FLUDARABINE PHOSPHATE) UNKNOWN [Suspect]

REACTIONS (2)
  - DRUG INTERACTION [None]
  - PYREXIA [None]
